FAERS Safety Report 22279622 (Version 1)
Quarter: 2023Q2

REPORT INFORMATION
  Report Type: Spontaneous
  Country: US (occurrence: US)
  Receive Date: 20230503
  Receipt Date: 20230503
  Transmission Date: 20230722
  Serious: Yes (Hospitalization)
  Sender: FDA-Public Use
  Company Number: US-ELI_LILLY_AND_COMPANY-US202305000963

PATIENT
  Age: 83 Year
  Sex: Female

DRUGS (2)
  1. TRULICITY [Suspect]
     Active Substance: DULAGLUTIDE
     Indication: Type 2 diabetes mellitus
     Dosage: 0.75 MG, UNKNOWN
     Route: 058
     Dates: start: 20221218
  2. INSULIN LONG [Concomitant]
     Indication: Type 2 diabetes mellitus
     Dosage: 37 U, DAILY
     Route: 065

REACTIONS (3)
  - Fall [Unknown]
  - Humerus fracture [Unknown]
  - Accidental underdose [Unknown]

NARRATIVE: CASE EVENT DATE: 20230422
